FAERS Safety Report 4490602-9 (Version None)
Quarter: 2004Q4

REPORT INFORMATION
  Report Type: 
  Country: None (occurrence: None)
  Receive Date: 20041027
  Receipt Date: 20040928
  Transmission Date: 20050328
  Serious: No
  Sender: FDA-Public Use
  Company Number: 8963

PATIENT
  Age: 7 Year
  Sex: Female

DRUGS (2)
  1. MIDAZOLAM [Suspect]
     Indication: SEDATIVE THERAPY
     Dosage: 100 MG/KG TOTAL
  2. FENTANYL [Suspect]
     Indication: SEDATIVE THERAPY
     Dosage: 6.4 MG/KG TOTAL

REACTIONS (5)
  - CONVULSION [None]
  - DRUG WITHDRAWAL SYNDROME [None]
  - LOSS OF CONSCIOUSNESS [None]
  - PNEUMONIA [None]
  - PROCEDURAL COMPLICATION [None]
